FAERS Safety Report 7682089-X (Version None)
Quarter: 2011Q3

REPORT INFORMATION
  Report Type: 
  Country: None (occurrence: None)
  Receive Date: 20110810
  Receipt Date: 20110729
  Transmission Date: 20111222
  Serious: Yes (Hospitalization)
  Sender: FDA-Public Use
  Company Number: 1000022679

PATIENT
  Age: 74 Year
  Sex: Female
  Weight: 65 kg

DRUGS (4)
  1. VENTOLINE (SALBUTAMOL) (SALBUTAMOL) [Concomitant]
  2. SPIRIVA (TIOTROPIUM BROMIDE) (TIOTROPIUM BROMIDE) [Concomitant]
  3. SERETIDE (FLUTICASONE, SALMETEROL) (FLUTICASONE, SALMETEROL) [Concomitant]
  4. ROFLUMILAST (ROFLUMILAST) (TABLETS) [Suspect]
     Indication: CHRONIC OBSTRUCTIVE PULMONARY DISEASE
     Dosage: 500 MCG (500 MCG, 1 IN 1 D), ORAL
     Route: 048
     Dates: start: 20110720, end: 20110727

REACTIONS (2)
  - NAUSEA [None]
  - MALAISE [None]
